FAERS Safety Report 7897202-9 (Version None)
Quarter: 2011Q4

REPORT INFORMATION
  Report Type: 
  Country: None (occurrence: None)
  Receive Date: 20111107
  Receipt Date: 20111027
  Transmission Date: 20120403
  Serious: Yes (Life-Threatening)
  Sender: FDA-Public Use
  Company Number: GB-TEVA-306783ISR

PATIENT
  Sex: Male

DRUGS (12)
  1. MIRTAZAPINE [Suspect]
     Indication: DEPRESSED MOOD
     Dosage: AT NIGHT.
     Route: 048
     Dates: start: 20111006, end: 20111010
  2. SIMVASTATIN [Concomitant]
  3. BENZODIAZEPINES NOS [Concomitant]
  4. OMEPRAZOLE [Concomitant]
  5. CLOZAPINE [Concomitant]
     Route: 048
     Dates: end: 20111006
  6. DIPYRIDAMOLE [Concomitant]
  7. AMOXICILLIN AND CLAVULANATE POTASSIUM [Concomitant]
     Indication: INFECTION
     Dosage: ONGOING
     Route: 048
     Dates: start: 20111006
  8. HYOSCINE HYDROBROMIDE [Concomitant]
  9. LOPERAMIDE HCL [Concomitant]
  10. ASPIRIN [Concomitant]
  11. MIRTAZAPINE [Suspect]
     Dosage: AT NIGHT
     Route: 048
     Dates: start: 20111003, end: 20111006
  12. CLOZAPINE [Concomitant]
     Indication: SCHIZOPHRENIA
     Dosage: SLIGHT DOSE INCREASE
     Route: 048
     Dates: start: 20111006, end: 20111007

REACTIONS (1)
  - NEUROLEPTIC MALIGNANT SYNDROME [None]
